FAERS Safety Report 21939529 (Version 1)
Quarter: 2023Q1

REPORT INFORMATION
  Report Type: Report from Study
  Country: US (occurrence: US)
  Receive Date: 20230201
  Receipt Date: 20230201
  Transmission Date: 20230417
  Serious: No
  Sender: FDA-Public Use
  Company Number: US-EXELIXIS-CABO-21047795

PATIENT
  Sex: Male

DRUGS (6)
  1. CABOMETYX [Suspect]
     Active Substance: CABOZANTINIB S-MALATE
     Indication: Gastrointestinal stromal tumour
     Dosage: 60 MG, QD
     Route: 048
     Dates: start: 20211020
  2. CABOMETYX [Suspect]
     Active Substance: CABOZANTINIB S-MALATE
     Dosage: 60 MG, QD
     Route: 048
  3. ASPIRIN [Concomitant]
     Active Substance: ASPIRIN
  4. METOPROLOL TARTRATE [Concomitant]
     Active Substance: METOPROLOL TARTRATE
  5. POTASSIUM GLUCONATE [Concomitant]
     Active Substance: POTASSIUM GLUCONATE
  6. SUTENT [Concomitant]
     Active Substance: SUNITINIB MALATE

REACTIONS (3)
  - Peripheral swelling [Unknown]
  - Product dose omission issue [Unknown]
  - Off label use [Unknown]
